FAERS Safety Report 15789051 (Version 2)
Quarter: 2019Q3

REPORT INFORMATION
  Report Type: Spontaneous
  Country: US (occurrence: US)
  Receive Date: 20190104
  Receipt Date: 20190731
  Transmission Date: 20191004
  Serious: No
  Sender: FDA-Public Use
  Company Number: US-PFIZER INC-2019000769

PATIENT
  Age: 14 Year
  Sex: Male

DRUGS (2)
  1. GENOTROPIN [Suspect]
     Active Substance: SOMATROPIN
     Indication: SEPTO-OPTIC DYSPLASIA
     Dosage: UNK UNK, WEEKLY (ALTERNATING DOSE OF 2.4MG AND 2.6MG , 7 DAYS A WEEK)
  2. GENOTROPIN [Suspect]
     Active Substance: SOMATROPIN
     Indication: BLOOD GROWTH HORMONE
     Dosage: UNK, DAILY (ALTERNATING DOSE OF 2.4MG AND 2.6MG, DAILY)

REACTIONS (7)
  - Nausea [Unknown]
  - Malaise [Unknown]
  - Gastroenteritis [Unknown]
  - Pyrexia [Unknown]
  - Tachycardia [Unknown]
  - Headache [Unknown]
  - Disease recurrence [Unknown]
